FAERS Safety Report 20505320 (Version 1)
Quarter: 2022Q1

REPORT INFORMATION
  Report Type: Spontaneous
  Country: US (occurrence: None)
  Receive Date: 20220223
  Receipt Date: 20220223
  Transmission Date: 20220423
  Serious: No
  Sender: FDA-Public Use
  Company Number: US-Merck Healthcare KGaA-9301344

PATIENT
  Sex: Female

DRUGS (2)
  1. REBIF [Suspect]
     Active Substance: INTERFERON BETA-1A
     Indication: Multiple sclerosis
     Dosage: REBIF PREFILLED SYRINGE.
     Route: 058
     Dates: start: 20190930
  2. BUSPAR [Concomitant]
     Active Substance: BUSPIRONE HYDROCHLORIDE
     Indication: Anxiety

REACTIONS (5)
  - Wound [Recovered/Resolved]
  - Incision site impaired healing [Recovered/Resolved]
  - Hypokinesia [Not Recovered/Not Resolved]
  - Intentional product misuse [Unknown]
  - Treatment noncompliance [Unknown]
